FAERS Safety Report 9432261 (Version 5)
Quarter: 2014Q2

REPORT INFORMATION
  Report Type: Report from Study
  Country: JP (occurrence: JP)
  Receive Date: 20130731
  Receipt Date: 20140513
  Transmission Date: 20141212
  Serious: Yes (Death, Hospitalization, Other)
  Sender: FDA-Public Use
  Company Number: PHHY2013JP081278

PATIENT
  Age: 73 Year
  Sex: Female
  Weight: 48 kg

DRUGS (10)
  1. AFINITOR [Suspect]
     Indication: PANCREATIC NEUROENDOCRINE TUMOUR
     Dosage: 10 MG, DAILY
     Route: 048
     Dates: start: 20120130, end: 20120329
  2. NU-LOTAN [Concomitant]
     Dosage: 50 MG
     Route: 048
     Dates: end: 20120430
  3. FLUITRAN [Concomitant]
     Dosage: 2 MG
     Route: 048
     Dates: end: 20120430
  4. ALDACTONE A [Concomitant]
     Indication: PROPHYLAXIS
     Dosage: 50 MG
     Route: 048
     Dates: end: 20120430
  5. PARIET [Concomitant]
     Dosage: 10 MG
     Route: 048
     Dates: end: 20120430
  6. ALLEGRA [Concomitant]
     Indication: PRURITUS
     Dosage: 120 MG
     Route: 048
     Dates: end: 20120430
  7. WARFARIN [Concomitant]
     Dosage: 1.5 MG
     Route: 048
     Dates: end: 20120430
  8. METGLUCO [Concomitant]
     Dosage: 250 MG
     Route: 048
     Dates: end: 20120430
  9. AMARYL [Concomitant]
     Dosage: 0.5 MG
     Route: 048
     Dates: start: 20120308, end: 20120430
  10. LIPACREON [Concomitant]
     Indication: PANCREATIC NEUROENDOCRINE TUMOUR
     Dosage: 900 MG, DAILY
     Dates: start: 20120315, end: 20120321

REACTIONS (14)
  - Haemorrhage [Fatal]
  - Metastases to stomach [Fatal]
  - Oedema peripheral [Recovering/Resolving]
  - Pancreatic neuroendocrine tumour [Unknown]
  - Malignant neoplasm progression [Not Recovered/Not Resolved]
  - General physical health deterioration [Unknown]
  - C-reactive protein increased [Unknown]
  - Gamma-glutamyltransferase increased [Unknown]
  - Lymphocyte count decreased [Unknown]
  - Haemoglobin decreased [Unknown]
  - Pleural effusion [Not Recovered/Not Resolved]
  - Pulmonary congestion [Not Recovered/Not Resolved]
  - Blood phosphorus decreased [Unknown]
  - Diarrhoea [Recovered/Resolved]
